FAERS Safety Report 14588349 (Version 1)
Quarter: 2018Q1

REPORT INFORMATION
  Report Type: Spontaneous
  Country: IT (occurrence: IT)
  Receive Date: 20180301
  Receipt Date: 20180301
  Transmission Date: 20180509
  Serious: Yes (Life-Threatening, Hospitalization, Other)
  Sender: FDA-Public Use
  Company Number: IT-VALIDUS PHARMACEUTICALS LLC-IT-2018VAL000407

PATIENT
  Age: 59 Year
  Sex: Female

DRUGS (14)
  1. CALCITRIOL. [Suspect]
     Active Substance: CALCITRIOL
     Indication: HYPOPARATHYROIDISM
     Dosage: 0.5 ?G, QD
     Route: 048
  2. TORASEMIDE [Suspect]
     Active Substance: TORSEMIDE
     Indication: PRODUCT USED FOR UNKNOWN INDICATION
     Dosage: UNK
     Route: 065
  3. CALCITRIOL. [Suspect]
     Active Substance: CALCITRIOL
     Indication: HYPOCALCAEMIA
     Dosage: 1 ?G, QD
     Route: 048
  4. CALCIUM CARBONATE. [Suspect]
     Active Substance: CALCIUM CARBONATE
     Indication: CHRONIC KIDNEY DISEASE
  5. HYDROCHLOROTHIAZIDE. [Suspect]
     Active Substance: HYDROCHLOROTHIAZIDE
     Indication: HYPOCALCAEMIA
     Dosage: 125 MG, UNK
     Route: 065
  6. HYDROCHLOROTHIAZIDE. [Suspect]
     Active Substance: HYDROCHLOROTHIAZIDE
     Indication: CHRONIC KIDNEY DISEASE
     Dosage: 50 MG, QD
     Route: 065
  7. CALCIUM CARBONATE. [Suspect]
     Active Substance: CALCIUM CARBONATE
     Indication: HYPOPARATHYROIDISM
  8. CALCITRIOL. [Suspect]
     Active Substance: CALCITRIOL
     Indication: CHRONIC KIDNEY DISEASE
     Dosage: 0.25 ?G, QD
     Route: 048
  9. CALCIUM CARBONATE. [Suspect]
     Active Substance: CALCIUM CARBONATE
     Indication: HYPOCALCAEMIA
     Dosage: 3000 MG, QD
     Route: 065
  10. POTASSIUM CHLORIDE. [Concomitant]
     Active Substance: POTASSIUM CHLORIDE
     Indication: PRODUCT USED FOR UNKNOWN INDICATION
     Dosage: UNK
  11. HYDROCHLOROTHIAZIDE. [Suspect]
     Active Substance: HYDROCHLOROTHIAZIDE
     Indication: HYPOPARATHYROIDISM
  12. FUROSEMIDE. [Suspect]
     Active Substance: FUROSEMIDE
     Indication: PRODUCT USED FOR UNKNOWN INDICATION
     Dosage: UNK
     Route: 065
  13. WARFARIN [Concomitant]
     Active Substance: WARFARIN
     Indication: PRODUCT USED FOR UNKNOWN INDICATION
     Dosage: UNK
  14. LEVOTHYROXINE. [Concomitant]
     Active Substance: LEVOTHYROXINE
     Indication: PRODUCT USED FOR UNKNOWN INDICATION
     Dosage: UNK

REACTIONS (7)
  - Drug interaction [Unknown]
  - Milk-alkali syndrome [Recovered/Resolved]
  - Acute kidney injury [Recovered/Resolved]
  - Tetany [Unknown]
  - Metabolic alkalosis [Recovered/Resolved]
  - Hypercalcaemia [Recovered/Resolved]
  - Fall [Unknown]
